FAERS Safety Report 7867827-5 (Version None)
Quarter: 2011Q4

REPORT INFORMATION
  Report Type: 
  Country: None (occurrence: None)
  Receive Date: 20111028
  Receipt Date: 20111013
  Transmission Date: 20120403
  Serious: Yes (Hospitalization)
  Sender: FDA-Public Use
  Company Number: US-ELI_LILLY_AND_COMPANY-US201105000988

PATIENT
  Sex: Female
  Weight: 63.5 kg

DRUGS (18)
  1. TETRACYCLINE [Concomitant]
     Dosage: UNK, PRN
  2. TYLENOL                                 /SCH/ [Concomitant]
     Dosage: UNK, PRN
  3. CITRUCEL [Concomitant]
  4. FIORICET [Concomitant]
  5. ZOFRAN [Concomitant]
  6. FLORASTOR [Concomitant]
  7. ULTRAM [Concomitant]
     Dosage: UNK, PRN
  8. DURAGESIC-100 [Concomitant]
  9. EFFEXOR [Concomitant]
  10. COLACE [Concomitant]
  11. CALCIUM [Concomitant]
  12. FORTEO [Suspect]
     Dosage: 20 UG, QD
     Route: 058
     Dates: start: 20110501
  13. FORTEO [Suspect]
     Dosage: 20 UG, QD
     Route: 058
  14. KLONOPIN [Concomitant]
  15. PRILOSEC [Concomitant]
  16. DILAUDID [Concomitant]
  17. FORTEO [Suspect]
     Indication: OSTEOPOROSIS
     Dosage: 20 UG, QD
     Route: 058
     Dates: start: 20110101, end: 20110426
  18. FLEXERIL [Concomitant]

REACTIONS (9)
  - INFLUENZA LIKE ILLNESS [None]
  - MEDICATION ERROR [None]
  - LOSS OF CONSCIOUSNESS [None]
  - ABDOMINAL PAIN [None]
  - FRUSTRATION [None]
  - DEHYDRATION [None]
  - MEMORY IMPAIRMENT [None]
  - MALAISE [None]
  - GENERAL PHYSICAL HEALTH DETERIORATION [None]
